FAERS Safety Report 15087829 (Version 1)
Quarter: 2018Q2

REPORT INFORMATION
  Report Type: Spontaneous
  Country: JP (occurrence: JP)
  Receive Date: 20180629
  Receipt Date: 20180629
  Transmission Date: 20180711
  Serious: Yes (Hospitalization)
  Sender: FDA-Public Use
  Company Number: JP-TEVA-2018-JP-913665

PATIENT
  Age: 71 Year
  Sex: Male

DRUGS (1)
  1. WARFARIN [Suspect]
     Active Substance: WARFARIN
     Indication: CEREBRAL INFARCTION
     Route: 065

REACTIONS (3)
  - Intra-abdominal haemorrhage [Recovered/Resolved]
  - Liposarcoma [Recovered/Resolved]
  - Anaemia [Unknown]
